FAERS Safety Report 14429463 (Version 2)
Quarter: 2018Q3

REPORT INFORMATION
  Report Type: Report from Study
  Country: US (occurrence: US)
  Receive Date: 20180123
  Receipt Date: 20180719
  Transmission Date: 20181010
  Serious: No
  Sender: FDA-Public Use
  Company Number: US-AMGEN-USASL2017178672

PATIENT
  Age: 59 Year
  Sex: Female

DRUGS (1)
  1. REPATHA [Suspect]
     Active Substance: EVOLOCUMAB
     Indication: HYPERCHOLESTEROLAEMIA
     Dosage: 140 MG, Q2WK
     Route: 065
     Dates: start: 201710

REACTIONS (8)
  - Nausea [Unknown]
  - Arthralgia [Not Recovered/Not Resolved]
  - Influenza like illness [Unknown]
  - Back pain [Unknown]
  - Rhinorrhoea [Unknown]
  - Fatigue [Unknown]
  - Confusional state [Unknown]
  - Malaise [Unknown]

NARRATIVE: CASE EVENT DATE: 201710
